FAERS Safety Report 14453761 (Version 1)
Quarter: 2018Q1

REPORT INFORMATION
  Report Type: Spontaneous
  Country: US (occurrence: US)
  Receive Date: 20180129
  Receipt Date: 20180129
  Transmission Date: 20180509
  Serious: No
  Sender: FDA-Public Use
  Company Number: US-ENDO PHARMACEUTICALS INC-2017-002804

PATIENT
  Sex: Male

DRUGS (1)
  1. HYDROCODONE/ACETAMINOPHEN 5MG/325MG [Suspect]
     Active Substance: ACETAMINOPHEN\HYDROCODONE
     Indication: NEURALGIA
     Dosage: UNK UNK, HALF A PILL AT A TIME
     Route: 048

REACTIONS (5)
  - Product colour issue [Unknown]
  - Dizziness [Unknown]
  - Drug ineffective [Unknown]
  - Wrong technique in product usage process [Unknown]
  - Nausea [Unknown]
